FAERS Safety Report 24782914 (Version 1)
Quarter: 2024Q4

REPORT INFORMATION
  Report Type: Spontaneous
  Country: CN (occurrence: CN)
  Receive Date: 20241227
  Receipt Date: 20241227
  Transmission Date: 20250114
  Serious: Yes (Other)
  Sender: RANBAXY
  Company Number: CN-SUN PHARMACEUTICAL INDUSTRIES LTD-2024R1-486750

PATIENT
  Age: 29 Year
  Sex: Female

DRUGS (3)
  1. PREDNISONE [Suspect]
     Active Substance: PREDNISONE
     Indication: Ulcer
     Dosage: 30 MILLIGRAM, DAILY
     Route: 065
  2. CYCLOPHOSPHAMIDE [Suspect]
     Active Substance: CYCLOPHOSPHAMIDE
     Indication: Ulcer
     Dosage: 0.8 GRAM, MONTHLY
     Route: 065
  3. THYMOSIN [Suspect]
     Active Substance: THYMOSIN
     Indication: Ulcer
     Dosage: 20 MILLIGRAM, BID
     Route: 065

REACTIONS (1)
  - Disease progression [Unknown]
